FAERS Safety Report 5027017-0 (Version None)
Quarter: 2006Q2

REPORT INFORMATION
  Report Type: 
  Country: None (occurrence: None)
  Receive Date: 20060615
  Receipt Date: 20060608
  Transmission Date: 20061013
  Serious: Yes (Other)
  Sender: FDA-Public Use
  Company Number: FR-BRISTOL-MYERS SQUIBB COMPANY-13407291

PATIENT
  Age: 83 Year
  Sex: Female

DRUGS (5)
  1. CORGARD [Suspect]
     Indication: HYPERTENSION
     Dosage: DURATION: 10 YEARS
     Route: 048
     Dates: start: 19960101
  2. LASILIX [Concomitant]
     Indication: HYPERTENSION
     Route: 048
     Dates: start: 19960101
  3. RENITEC [Concomitant]
     Indication: HYPERTENSION
     Dates: start: 20060408
  4. METEOSPASMYL [Concomitant]
     Indication: GASTROINTESTINAL DISORDER
     Route: 048
     Dates: start: 20060408
  5. EVISTA [Concomitant]
     Indication: OSTEOPOROSIS
     Dates: start: 20060401

REACTIONS (3)
  - BRADYCARDIA [None]
  - DIZZINESS POSTURAL [None]
  - SYNCOPE [None]
